FAERS Safety Report 19771446 (Version 3)
Quarter: 2021Q3

REPORT INFORMATION
  Report Type: Report from Study
  Country: US (occurrence: US)
  Receive Date: 20210831
  Receipt Date: 20210921
  Transmission Date: 20211014
  Serious: Yes (Hospitalization)
  Sender: FDA-Public Use
  Company Number: US-BAYER-2021-187587

PATIENT
  Age: 69 Year
  Sex: Male

DRUGS (1)
  1. VITRAKVI [Suspect]
     Active Substance: LAROTRECTINIB
     Indication: COLON CANCER
     Dosage: 100 MG, BID
     Route: 048
     Dates: start: 20210804

REACTIONS (2)
  - Pain [Unknown]
  - Hospitalisation [Unknown]
